FAERS Safety Report 24172713 (Version 2)
Quarter: 2024Q3

REPORT INFORMATION
  Report Type: Spontaneous
  Country: US (occurrence: US)
  Receive Date: 20240805
  Receipt Date: 20240829
  Transmission Date: 20241016
  Serious: Yes (Other)
  Sender: AUROBINDO
  Company Number: US-AUROBINDO-AUR-APL-2024-038235

PATIENT
  Age: 72 Year
  Sex: Male

DRUGS (1)
  1. TESTOSTERONE [Suspect]
     Active Substance: TESTOSTERONE
     Indication: Prostate cancer
     Dosage: 250 MILLIGRAM PER MILLILITRE EVERY 7-10 DAYS
     Route: 065
     Dates: start: 2010

REACTIONS (2)
  - Prostatic specific antigen increased [Unknown]
  - Self-medication [Unknown]

NARRATIVE: CASE EVENT DATE: 20170101
